FAERS Safety Report 19886994 (Version 3)
Quarter: 2021Q4

REPORT INFORMATION
  Report Type: Spontaneous
  Country: DE (occurrence: DE)
  Receive Date: 20210927
  Receipt Date: 20211011
  Transmission Date: 20220303
  Serious: Yes (Other)
  Sender: FDA-Public Use
  Company Number: DE-CAMURUS AB-DE-CAM-20-00122

PATIENT
  Sex: Female

DRUGS (18)
  1. RAMIPRIL [Suspect]
     Active Substance: RAMIPRIL
     Indication: Product used for unknown indication
     Dosage: 5 MILLIGRAM, QD
  2. SUBUTEX [Suspect]
     Active Substance: BUPRENORPHINE HYDROCHLORIDE
     Indication: Product used for unknown indication
     Dosage: 8 MILLIGRAM, QD
  3. RIVOTRIL [Suspect]
     Active Substance: CLONAZEPAM
     Indication: Product used for unknown indication
     Dosage: 2 MILLIGRAM
  4. QUETIAPINE [Suspect]
     Active Substance: QUETIAPINE
     Indication: Product used for unknown indication
     Dosage: 400 MILLIGRAM, QD
  5. BUPRENORPHINE [Suspect]
     Active Substance: BUPRENORPHINE
     Indication: Product used for unknown indication
     Dosage: 128 MILLIGRAM, Q28D
     Dates: start: 20201201
  6. BUPRENORPHINE [Suspect]
     Active Substance: BUPRENORPHINE
     Dosage: 24 MG (FIRST DAY), 24 MG (SECOND DAY)
     Dates: start: 20200131, end: 20200131
  7. BUPRENORPHINE [Suspect]
     Active Substance: BUPRENORPHINE
     Dosage: UNK
  8. BUPRENORPHINE [Suspect]
     Active Substance: BUPRENORPHINE
     Dosage: 128 MILLIGRAM, Q28D
  9. BUPRENORPHINE [Suspect]
     Active Substance: BUPRENORPHINE
     Dosage: 8 MILLIGRAM, QD
  10. BUPRENORPHINE [Suspect]
     Active Substance: BUPRENORPHINE
     Dosage: 24 MILLIGRAM, QW
     Dates: start: 20200211, end: 20200211
  11. BUPRENORPHINE [Suspect]
     Active Substance: BUPRENORPHINE
     Dosage: 24 MILLIGRAM, 1 MONTH
     Dates: start: 20200225, end: 20200225
  12. BUPRENORPHINE [Suspect]
     Active Substance: BUPRENORPHINE
     Dosage: 96 MILLIGRAM, 1 MONTH
     Dates: start: 20200302, end: 20200302
  13. BUPRENORPHINE [Suspect]
     Active Substance: BUPRENORPHINE
     Dosage: 24 MILLIGRAM, QW
     Dates: start: 20200217, end: 20200217
  14. BUPRENORPHINE [Suspect]
     Active Substance: BUPRENORPHINE
     Dosage: 96 MILLIGRAM, 1 MONTH
     Dates: start: 20200324, end: 202011
  15. METOPROLOL FUMARATE [Suspect]
     Active Substance: METOPROLOL FUMARATE
     Indication: Product used for unknown indication
     Dosage: UNK, QD
  16. ADALAT [Suspect]
     Active Substance: NIFEDIPINE
     Indication: Product used for unknown indication
     Dosage: 40 MILLIGRAM, QD
  17. METOPROLOL TARTRATE [Suspect]
     Active Substance: METOPROLOL TARTRATE
     Indication: Product used for unknown indication
     Dosage: UNK, DOSE TEXT: 47
  18. METOPROLOL TARTRATE [Suspect]
     Active Substance: METOPROLOL TARTRATE
     Dosage: 95 MILLIGRAM, QD

REACTIONS (5)
  - Pre-eclampsia [Unknown]
  - Drug abuse [Unknown]
  - Withdrawal syndrome [Unknown]
  - Maternal exposure during pregnancy [Recovered/Resolved]
  - Drug titration error [Recovered/Resolved]

NARRATIVE: CASE EVENT DATE: 20200101
